FAERS Safety Report 17144671 (Version 1)
Quarter: 2019Q4

REPORT INFORMATION
  Report Type: Spontaneous
  Country: US (occurrence: US)
  Receive Date: 20191212
  Receipt Date: 20191212
  Transmission Date: 20200122
  Serious: No
  Sender: FDA-Public Use
  Company Number: US-NOVEN PHARMACEUTICALS, INC.-US2018000645

PATIENT

DRUGS (6)
  1. TESTOSTERONE. [Concomitant]
     Active Substance: TESTOSTERONE
  2. MINIVELLE [Suspect]
     Active Substance: ESTRADIOL
     Indication: HOT FLUSH
     Dosage: 0.075 MG, UNK
     Route: 062
     Dates: start: 2018, end: 2018
  3. MINIVELLE [Suspect]
     Active Substance: ESTRADIOL
     Dosage: 0.1 MG, UNK
     Route: 062
  4. MINIVELLE [Suspect]
     Active Substance: ESTRADIOL
     Dosage: 0.1 MG, 2/WK EVERY MONDAY AND FRIDAY
     Route: 062
     Dates: start: 2018
  5. PROGESTERONE. [Concomitant]
     Active Substance: PROGESTERONE
  6. MINIVELLE [Suspect]
     Active Substance: ESTRADIOL
     Indication: NIGHT SWEATS
     Dosage: 0.05 MG, UNKNOWN
     Route: 062
     Dates: start: 2018, end: 2018

REACTIONS (9)
  - Blood oestrogen decreased [Unknown]
  - Insomnia [Recovered/Resolved]
  - Hot flush [Recovered/Resolved]
  - Thinking abnormal [Recovered/Resolved]
  - Product quality issue [Not Recovered/Not Resolved]
  - Metrorrhagia [Unknown]
  - Product adhesion issue [Not Recovered/Not Resolved]
  - Libido decreased [Recovered/Resolved]
  - Mood swings [Recovered/Resolved]

NARRATIVE: CASE EVENT DATE: 2018
